FAERS Safety Report 6999808-8 (Version None)
Quarter: 2010Q3

REPORT INFORMATION
  Report Type: 
  Country: None (occurrence: None)
  Receive Date: 20100920
  Receipt Date: 20100910
  Transmission Date: 20110219
  Serious: Yes (Hospitalization, Other)
  Sender: FDA-Public Use
  Company Number: PHHY2010US29133

PATIENT
  Sex: Female

DRUGS (1)
  1. EXJADE [Suspect]
     Indication: NEOPLASM
     Dosage: 500 MG, QD
     Route: 048

REACTIONS (4)
  - MALAISE [None]
  - RENAL DISORDER [None]
  - SURGERY [None]
  - TREATMENT NONCOMPLIANCE [None]
